FAERS Safety Report 17968183 (Version 1)
Quarter: 2020Q3

REPORT INFORMATION
  Report Type: Report from Study
  Country: US (occurrence: US)
  Receive Date: 20200701
  Receipt Date: 20200701
  Transmission Date: 20201103
  Serious: Yes (Life-Threatening)
  Sender: FDA-Public Use
  Company Number: US-PFIZER INC-2020250807

PATIENT

DRUGS (4)
  1. PROTAMINE [Suspect]
     Active Substance: PROTAMINE
     Indication: PROCOAGULANT THERAPY
     Dosage: 200 MG (INFUSION)
  2. PROTAMINE INSULIN ASPART [Suspect]
     Active Substance: INSULIN ASPART
     Indication: TYPE 1 DIABETES MELLITUS
     Dosage: UNK
  3. HEPARIN [Concomitant]
     Active Substance: HEPARIN SODIUM
     Indication: ANTICOAGULANT THERAPY
     Dosage: UNK
  4. EPINEPHRINE. [Suspect]
     Active Substance: EPINEPHRINE
     Indication: RESUSCITATION
     Dosage: 4 UG (FOLLOWED BY A VARIABLE RATE OF INFUSION TO RESTORE HEMODYNAMIC STABILITY)
     Route: 040

REACTIONS (1)
  - Pulmonary arterial pressure increased [Not Recovered/Not Resolved]
